FAERS Safety Report 18175571 (Version 1)
Quarter: 2020Q3

REPORT INFORMATION
  Report Type: Spontaneous
  Country: US (occurrence: US)
  Receive Date: 20200820
  Receipt Date: 20200820
  Transmission Date: 20201103
  Serious: No
  Sender: FDA-Public Use
  Company Number: US-TEVA-2020-US-1816379

PATIENT
  Age: 64 Year
  Sex: Female

DRUGS (6)
  1. RETACRIT [Concomitant]
     Active Substance: EPOETIN ALFA-EPBX
  2. GRANIX [Suspect]
     Active Substance: TBO-FILGRASTIM
     Indication: VARICES OESOPHAGEAL
     Route: 065
     Dates: start: 20200715
  3. VELTASSA [Concomitant]
     Active Substance: PATIROMER
  4. DEXTROSE IN WATER [Concomitant]
     Active Substance: DEXTROSE\WATER
  5. VITAMIN B12 [Concomitant]
     Active Substance: CYANOCOBALAMIN
  6. GRANIX [Suspect]
     Active Substance: TBO-FILGRASTIM
     Indication: HYPERTENSIVE NEPHROPATHY

REACTIONS (1)
  - Product use in unapproved indication [Unknown]

NARRATIVE: CASE EVENT DATE: 20200715
